FAERS Safety Report 22109382 (Version 2)
Quarter: 2023Q2

REPORT INFORMATION
  Report Type: Spontaneous
  Country: US (occurrence: US)
  Receive Date: 20230317
  Receipt Date: 20230504
  Transmission Date: 20230722
  Serious: Yes (Hospitalization)
  Sender: FDA-Public Use
  Company Number: US-BRISTOL-MYERS SQUIBB COMPANY-2023-038773

PATIENT
  Age: 58 Year
  Sex: Male

DRUGS (2)
  1. ELIQUIS [Suspect]
     Active Substance: APIXABAN
     Indication: Product used for unknown indication
     Route: 048
  2. ERTAPENEM [Concomitant]
     Active Substance: ERTAPENEM
     Indication: Abscess intestinal
     Route: 042
     Dates: start: 20230125, end: 20230223

REACTIONS (1)
  - Hospitalisation [Unknown]
